FAERS Safety Report 6271887-5 (Version None)
Quarter: 2009Q3

REPORT INFORMATION
  Report Type: 
  Country: None (occurrence: None)
  Receive Date: 20090717
  Receipt Date: 20090714
  Transmission Date: 20100115
  Serious: Yes (Death)
  Sender: FDA-Public Use
  Company Number: PHHY2009MX28042

PATIENT
  Sex: Male

DRUGS (1)
  1. DIOVAN [Suspect]
     Indication: HYPERTENSION
     Dosage: 0.5 DF (160 MG)/ DAY
     Route: 048
     Dates: start: 20050101

REACTIONS (10)
  - ARRHYTHMIA [None]
  - BLADDER CANCER [None]
  - BLADDER NEOPLASM SURGERY [None]
  - CARDIO-RESPIRATORY ARREST [None]
  - HYPERTENSION [None]
  - METASTASES TO LUNG [None]
  - PERITONITIS [None]
  - PROSTATE CANCER [None]
  - RENAL FAILURE CHRONIC [None]
  - SURGERY [None]
